FAERS Safety Report 14732146 (Version 3)
Quarter: 2018Q3

REPORT INFORMATION
  Report Type: Report from Study
  Country: None (occurrence: DE)
  Receive Date: 20180409
  Receipt Date: 20180910
  Transmission Date: 20181010
  Serious: Yes (Hospitalization, Other)
  Sender: FDA-Public Use
  Company Number: DE-ABBVIE-18K-062-2314673-00

PATIENT
  Sex: Female
  Weight: 87 kg

DRUGS (5)
  1. HUMIRA [Suspect]
     Active Substance: ADALIMUMAB
     Indication: CROHN^S DISEASE
     Route: 058
     Dates: start: 2007, end: 20170616
  2. ENBREL [Suspect]
     Active Substance: ETANERCEPT
     Indication: GASTROINTESTINAL INFLAMMATION
     Route: 065
     Dates: start: 2017
  3. HUMIRA [Suspect]
     Active Substance: ADALIMUMAB
     Route: 058
     Dates: start: 20180323
  4. DEKRISTOL [Concomitant]
     Active Substance: CHOLECALCIFEROL
     Indication: PRODUCT USED FOR UNKNOWN INDICATION
     Dosage: BEFORE HUMIRA
  5. THYRONAJOD [Concomitant]
     Active Substance: LEVOTHYROXINE SODIUM\POTASSIUM IODIDE
     Indication: PRODUCT USED FOR UNKNOWN INDICATION

REACTIONS (8)
  - Thyroid mass [Recovered/Resolved]
  - Drug ineffective [Unknown]
  - Nasopharyngitis [Recovered/Resolved]
  - Muscle spasms [Recovered/Resolved]
  - Gastrooesophageal reflux disease [Recovering/Resolving]
  - Pain [Recovered/Resolved]
  - Gastrointestinal inflammation [Recovered/Resolved]
  - Chronic gastritis [Recovering/Resolving]

NARRATIVE: CASE EVENT DATE: 2009
